FAERS Safety Report 12236918 (Version 4)
Quarter: 2017Q3

REPORT INFORMATION
  Report Type: Spontaneous
  Country: IT (occurrence: IT)
  Receive Date: 20160405
  Receipt Date: 20170808
  Transmission Date: 20171127
  Serious: Yes (Hospitalization, Other)
  Sender: FDA-Public Use
  Company Number: IT-ACCORD-038938

PATIENT
  Age: 52 Year
  Sex: Male
  Weight: 73 kg

DRUGS (5)
  1. AVASTIN [Suspect]
     Active Substance: BEVACIZUMAB
     Indication: RECTAL ADENOCARCINOMA
     Dosage: ALSO RECEIVED 365MG FROM 23-JUN-2016 TO 26-JAN-2017.?400 MG FROM 07-APR-2017 TO 26-MAY-2017.
     Route: 042
     Dates: start: 20160114
  2. LEDERFOLIN [Concomitant]
     Active Substance: LEUCOVORIN CALCIUM
     Indication: RECTAL ADENOCARCINOMA
     Route: 042
     Dates: start: 20160114, end: 20160211
  3. FLUOROURACIL. [Suspect]
     Active Substance: FLUOROURACIL
     Indication: RECTAL ADENOCARCINOMA
     Dosage: ALSO RECEIVED 640MG IV BOLUS, 570MG IV BOLUS, 3400MG IV DRIP: 23-JUN-2016 TO 26-JAN-2017
     Route: 042
     Dates: start: 20160114
  4. LEVOFOLINIC ACID [Concomitant]
     Active Substance: LEVOLEUCOVORIN
     Indication: RECTAL ADENOCARCINOMA
     Dosage: ON 07-APR-2017 TO 26-MAY-2017 AT DOSE OF 300MG?ALSO RECEIVED 285 MG
     Route: 042
     Dates: start: 20160623, end: 20170126
  5. OXALIPLATIN. [Suspect]
     Active Substance: OXALIPLATIN
     Indication: RECTAL ADENOCARCINOMA
     Dosage: ALSO RECEIVED 120 MG
     Route: 042
     Dates: start: 20160623

REACTIONS (8)
  - Cholecystitis acute [Recovering/Resolving]
  - Constipation [Recovering/Resolving]
  - Abdominal pain [Unknown]
  - Diarrhoea [Recovering/Resolving]
  - Hypertriglyceridaemia [Unknown]
  - Visual acuity reduced [Not Recovered/Not Resolved]
  - Hyperbilirubinaemia [Recovering/Resolving]
  - Erectile dysfunction [Not Recovered/Not Resolved]

NARRATIVE: CASE EVENT DATE: 20160208
